FAERS Safety Report 12138427 (Version 1)
Quarter: 2016Q1

REPORT INFORMATION
  Report Type: Spontaneous
  Country: TR (occurrence: TR)
  Receive Date: 20160302
  Receipt Date: 20160302
  Transmission Date: 20160526
  Serious: Yes (Other)
  Sender: FDA-Public Use
  Company Number: TR-UNICHEM LABORATORIES LIMITED-UCM201602-000018

PATIENT
  Age: 8 Year
  Sex: Male

DRUGS (1)
  1. DIVALPROEX SODIUM. [Suspect]
     Active Substance: DIVALPROEX SODIUM
     Indication: AUTISM

REACTIONS (3)
  - Hypersensitivity [Recovered/Resolved]
  - Product use issue [Unknown]
  - Eosinophilic cystitis [Recovered/Resolved]
